FAERS Safety Report 5531494-6 (Version None)
Quarter: 2007Q4

REPORT INFORMATION
  Report Type: 
  Country: None (occurrence: None)
  Receive Date: 20071128
  Receipt Date: 20071115
  Transmission Date: 20080405
  Serious: Yes (Other)
  Sender: FDA-Public Use
  Company Number: GXKR2007DE08863

PATIENT
  Age: 50 Year
  Sex: Female
  Weight: 78.6 kg

DRUGS (19)
  1. MELPERONE (NGX)(MELPEFIONE) UNKNOWN [Suspect]
     Indication: SCHIZOPHRENIA
     Dosage: 350 MG, QD
     Dates: start: 20060919
  2. LEVOMEPROMAZINE (NGX) (LEVOMEPROMAZINE) UNKNOWN [Suspect]
     Dosage: 225 MG TO 15/6
  3. PIPAMPERONE (NGX)(PIPAMPERONE) UNKNOWN [Suspect]
     Dosage: 100 MG, QD, 20 MG QD
  4. AMISULPRIDE (NGX)(AMISULPRIDE)UNKNOWN [Suspect]
     Dosage: 300 MG, QD
  5. PROMETHAZINE [Suspect]
     Dosage: 150 MG, QD
  6. BENPERIDOL (BENPERIDOL) [Suspect]
     Indication: SCHIZOPHRENIA
     Dosage: 19 MG, QD
     Dates: start: 20061017
  7. ZUCLOPENTHIXOL (ZUCLOPENTHIXOL) [Suspect]
     Dosage: 25 MG, QD
  8. VALPROATE SODIUM [Concomitant]
  9. BIPERIDEN HYDROCHLORIDE TAB [Concomitant]
  10. DIAZEPAM [Concomitant]
  11. LORAZEPAM [Concomitant]
  12. FLUNITRAZEPAM (FLUNITRAZEPAM) [Concomitant]
  13. ZOPICLONE (ZOPICLONE) [Concomitant]
  14. CERTOPARIN SODIUM (CERTOPARIN SODIUM) [Concomitant]
  15. PENICILLIN G [Concomitant]
  16. CLINDAMYCIN (CLINDAMYCIN) [Concomitant]
  17. DIMETINDENE (DIMETINDENE) [Concomitant]
  18. BELLADONNA ALKALOIDS (BELLADONNA ALKALOIDS) [Concomitant]
  19. PANTOPRAZOLE SODIUM [Concomitant]

REACTIONS (7)
  - BRADYCARDIA [None]
  - COMA [None]
  - DISEASE RECURRENCE [None]
  - HYPOGLYCAEMIA [None]
  - HYPOTHERMIA [None]
  - PYREXIA [None]
  - SOMNOLENCE [None]
